FAERS Safety Report 12303707 (Version 2)
Quarter: 2022Q3

REPORT INFORMATION
  Report Type: Spontaneous
  Country: US (occurrence: US)
  Receive Date: 20160426
  Receipt Date: 20220830
  Transmission Date: 20221026
  Serious: No
  Sender: FDA-Public Use
  Company Number: US-JNJFOC-20160413015

PATIENT
  Age: 6 Year
  Sex: Male

DRUGS (5)
  1. RISPERDAL [Suspect]
     Active Substance: RISPERIDONE
     Indication: Affective disorder
     Route: 048
     Dates: start: 20070418, end: 200705
  2. RISPERDAL [Suspect]
     Active Substance: RISPERIDONE
     Route: 048
     Dates: start: 20080707, end: 20080807
  3. RISPERDAL [Suspect]
     Active Substance: RISPERIDONE
     Route: 048
     Dates: end: 20080629
  4. RISPERIDONE [Suspect]
     Active Substance: RISPERIDONE
     Indication: Product used for unknown indication
     Route: 065
     Dates: start: 20081107, end: 20140614
  5. RISPERIDONE [Suspect]
     Active Substance: RISPERIDONE
     Route: 065
     Dates: start: 20101019, end: 20101119

REACTIONS (2)
  - Sedation [Unknown]
  - Off label use [Unknown]

NARRATIVE: CASE EVENT DATE: 20070501
